FAERS Safety Report 5366878-2 (Version None)
Quarter: 2007Q2

REPORT INFORMATION
  Report Type: 
  Country: None (occurrence: None)
  Receive Date: 20070622
  Receipt Date: 20061219
  Transmission Date: 20071010
  Serious: No
  Sender: FDA-Public Use
  Company Number: US-ASTRAZENECA-2006UW28361

PATIENT
  Sex: Female

DRUGS (7)
  1. RHINOCORT [Suspect]
     Route: 045
     Dates: start: 20061218
  2. PAXIL [Concomitant]
  3. MUCINEX [Concomitant]
  4. LOPRESSOR [Concomitant]
  5. HYDROCHLOROTHIAZIDE [Concomitant]
  6. LISINOPRIL [Concomitant]
  7. ESTROGENS SOL/INJ [Concomitant]

REACTIONS (2)
  - ANXIETY [None]
  - RESTLESSNESS [None]
